FAERS Safety Report 8530064-5 (Version None)
Quarter: 2012Q3

REPORT INFORMATION
  Report Type: 
  Country: None (occurrence: None)
  Receive Date: 20120723
  Receipt Date: 20120718
  Transmission Date: 20120928
  Serious: Yes (Disabling, Other)
  Sender: FDA-Public Use
  Company Number: PHHY2012NO061783

PATIENT
  Sex: Male

DRUGS (5)
  1. ZOLOFT [Concomitant]
  2. DIOVAN [Concomitant]
  3. NEXIUM [Concomitant]
  4. ZOMETA [Suspect]
     Indication: NON-HODGKIN'S LYMPHOMA
     Dates: start: 20040101
  5. DURAGESIC-100 [Concomitant]

REACTIONS (4)
  - OSTEONECROSIS OF JAW [None]
  - EXPOSED BONE IN JAW [None]
  - BREATH ODOUR [None]
  - BONE PAIN [None]
